FAERS Safety Report 23837969 (Version 2)
Quarter: 2025Q3

REPORT INFORMATION
  Report Type: Spontaneous
  Country: US (occurrence: US)
  Receive Date: 20240509
  Receipt Date: 20250804
  Transmission Date: 20251020
  Serious: No
  Sender: TEVA
  Company Number: US-TEVA-VS-3181436

PATIENT
  Age: 73 Year
  Sex: Female

DRUGS (2)
  1. CLONIDINE [Suspect]
     Active Substance: CLONIDINE
     Indication: Product used for unknown indication
     Route: 062
     Dates: start: 20240324
  2. CLONIDINE [Suspect]
     Active Substance: CLONIDINE
     Route: 062

REACTIONS (1)
  - Drug ineffective [Unknown]
